FAERS Safety Report 15197920 (Version 1)
Quarter: 2018Q3

REPORT INFORMATION
  Report Type: Spontaneous
  Country: US (occurrence: US)
  Receive Date: 20180725
  Receipt Date: 20180725
  Transmission Date: 20181010
  Serious: No
  Sender: FDA-Public Use
  Company Number: US-ABBVIE-17P-163-2147630-00

PATIENT
  Sex: Female

DRUGS (5)
  1. SYNTHROID [Suspect]
     Active Substance: LEVOTHYROXINE SODIUM
     Indication: HYPOTHYROIDISM
     Route: 048
     Dates: start: 1970, end: 201610
  2. SYNTHROID [Suspect]
     Active Substance: LEVOTHYROXINE SODIUM
     Route: 048
     Dates: start: 201707
  3. GABAPENTIN. [Suspect]
     Active Substance: GABAPENTIN
     Indication: MUSCLE SPASMS
     Route: 048
  4. PHENTERMINE. [Suspect]
     Active Substance: PHENTERMINE
     Indication: WEIGHT INCREASED
     Route: 065
  5. SYNTHROID [Suspect]
     Active Substance: LEVOTHYROXINE SODIUM
     Route: 048
     Dates: start: 201610, end: 201707

REACTIONS (6)
  - Oedema [Not Recovered/Not Resolved]
  - Muscle spasms [Not Recovered/Not Resolved]
  - Insomnia [Not Recovered/Not Resolved]
  - Dizziness [Not Recovered/Not Resolved]
  - Blood thyroid stimulating hormone increased [Recovered/Resolved]
  - Infertility female [Not Recovered/Not Resolved]

NARRATIVE: CASE EVENT DATE: 1977
